FAERS Safety Report 10154735 (Version 1)
Quarter: 2014Q2

REPORT INFORMATION
  Report Type: Spontaneous
  Country: US (occurrence: None)
  Receive Date: 20140505
  Receipt Date: 20140505
  Transmission Date: 20141212
  Serious: Yes (Hospitalization)
  Sender: FDA-Public Use
  Company Number: None

PATIENT
  Age: 26 Year
  Sex: Female
  Weight: 81.19 kg

DRUGS (2)
  1. COUMADIN [Suspect]
     Indication: DEEP VEIN THROMBOSIS
     Dates: start: 20120902, end: 20140502
  2. COUMADIN [Suspect]
     Indication: MAY-THURNER SYNDROME
     Dates: start: 20120902, end: 20140502

REACTIONS (1)
  - Drug intolerance [None]
